FAERS Safety Report 23754749 (Version 2)
Quarter: 2024Q2

REPORT INFORMATION
  Report Type: Report from Study
  Country: DE (occurrence: DE)
  Receive Date: 20240418
  Receipt Date: 20240508
  Transmission Date: 20240717
  Serious: Yes (Other)
  Sender: FDA-Public Use
  Company Number: DE-Merck Healthcare KGaA-2024010886

PATIENT
  Age: 11 Year
  Sex: Male
  Weight: 37 kg

DRUGS (3)
  1. SAIZEN [Suspect]
     Active Substance: SOMATROPIN
     Indication: Growth hormone deficiency
     Route: 058
     Dates: start: 20170823, end: 20171212
  2. SAIZEN [Suspect]
     Active Substance: SOMATROPIN
     Indication: Short stature
     Dosage: MOST RECENT DOSE OF 1.15 MG/DAY WAS GIVEN ON 22-JUN-2023.
     Route: 058
     Dates: end: 20230622
  3. SAIZEN [Suspect]
     Active Substance: SOMATROPIN
     Route: 058
     Dates: start: 20230629, end: 20240103

REACTIONS (5)
  - Petit mal epilepsy [Unknown]
  - Pyrexia [Recovered/Resolved]
  - Eye swelling [Recovered/Resolved]
  - Headache [Recovered/Resolved]
  - Headache [Recovered/Resolved]

NARRATIVE: CASE EVENT DATE: 20230519
